FAERS Safety Report 21479060 (Version 4)
Quarter: 2022Q4

REPORT INFORMATION
  Report Type: Spontaneous
  Country: JP (occurrence: JP)
  Receive Date: 20221019
  Receipt Date: 20221221
  Transmission Date: 20230113
  Serious: Yes (Death, Hospitalization)
  Sender: FDA-Public Use
  Company Number: JP-NEUROCRINE BIOSCIENCES INC.-2022NBI07344

PATIENT

DRUGS (7)
  1. VALBENAZINE [Suspect]
     Active Substance: VALBENAZINE
     Indication: Product used for unknown indication
     Dosage: 40 MILLIGRAM, QD
     Route: 048
     Dates: start: 20220727, end: 20220823
  2. VALBENAZINE [Suspect]
     Active Substance: VALBENAZINE
     Dosage: 80 MILLIGRAM, QD
     Route: 048
     Dates: start: 20220824, end: 20221004
  3. HALOPERIDOL [Suspect]
     Active Substance: HALOPERIDOL
     Indication: Product used for unknown indication
     Dosage: UNK
     Route: 042
     Dates: start: 20220401, end: 20220517
  4. HALOMONTH [Concomitant]
     Active Substance: HALOPERIDOL DECANOATE
     Dosage: UNKNOWN
     Route: 065
     Dates: start: 202206
  5. HALOPERIDOL [Concomitant]
     Active Substance: HALOPERIDOL
     Dosage: UNKNOWN
     Route: 065
     Dates: start: 20220401, end: 20220517
  6. RISPERIDONE [Concomitant]
     Active Substance: RISPERIDONE
     Dosage: UNKNOWN
     Route: 065
     Dates: start: 20220517
  7. HALCION [Concomitant]
     Active Substance: TRIAZOLAM
     Dosage: UNKNOWN
     Route: 065
     Dates: start: 20220504

REACTIONS (3)
  - Cardiac failure acute [Fatal]
  - Tardive dyskinesia [Unknown]
  - Pneumonia aspiration [Recovered/Resolved]

NARRATIVE: CASE EVENT DATE: 20220726
